FAERS Safety Report 7493241-0 (Version None)
Quarter: 2011Q2

REPORT INFORMATION
  Report Type: 
  Country: None (occurrence: None)
  Receive Date: 20110520
  Receipt Date: 20110418
  Transmission Date: 20111010
  Serious: Yes (Other)
  Sender: FDA-Public Use
  Company Number: US-BAYER-2011-009714

PATIENT
  Age: 42 Year
  Sex: Female
  Weight: 62.132 kg

DRUGS (11)
  1. CYCLOBENZAPRINE [Concomitant]
     Dosage: UNK
     Dates: start: 20080801
  2. YAZ [Suspect]
     Dosage: UNK
     Dates: start: 20090531, end: 20100118
  3. ACETAMINOPHEN [Concomitant]
     Indication: ABDOMINAL PAIN UPPER
     Dosage: UNK UNK, QD OR PRN
     Dates: start: 20091001, end: 20091101
  4. PRENATAL VITAMINS [VIT C,B5,B12,D2,B3,B6,RETINOL PALMIT,B2,B1 MONONITR [Concomitant]
     Dosage: UNK
     Dates: start: 20080801
  5. MYLANTA [CALCIUM CARBONATE] [Concomitant]
     Indication: ABDOMINAL PAIN UPPER
     Dosage: UNK UNK, QD OR PRN
     Dates: start: 20091001, end: 20091101
  6. PEPCID [Concomitant]
     Dosage: UNK
     Dates: start: 20080801
  7. OXYCODONE HCL AND ACETAMINOPHEN [Concomitant]
     Dosage: UNK
     Dates: start: 20090420, end: 20091110
  8. NEXIUM [Concomitant]
     Dosage: UNK
     Dates: start: 20080801
  9. ALKA SELTZER [Concomitant]
     Indication: ABDOMINAL PAIN UPPER
     Dosage: UNK UNK, QD OR PRN
     Dates: start: 20091001, end: 20091101
  10. LIPITOR [Concomitant]
     Dosage: UNK
     Dates: start: 20080801
  11. OXYCODONE HCL [Concomitant]
     Dosage: UNK
     Dates: start: 20090420, end: 20091110

REACTIONS (2)
  - GALLBLADDER DISORDER [None]
  - CHOLECYSTITIS [None]
